FAERS Safety Report 24850206 (Version 1)
Quarter: 2025Q1

REPORT INFORMATION
  Report Type: Report from Study
  Country: PH (occurrence: PH)
  Receive Date: 20250116
  Receipt Date: 20250116
  Transmission Date: 20250409
  Serious: Yes (Death)
  Sender: OTSUKA
  Company Number: PH-OTSUKA-2025_000861

PATIENT
  Sex: Male

DRUGS (1)
  1. TOLVAPTAN [Suspect]
     Active Substance: TOLVAPTAN
     Indication: Blood sodium decreased
     Dosage: 1 DF, QD
     Route: 048
     Dates: start: 202404, end: 202412

REACTIONS (3)
  - Acute respiratory failure [Fatal]
  - Blood creatine increased [Fatal]
  - Renal disorder [Fatal]
